FAERS Safety Report 5228486-3 (Version None)
Quarter: 2007Q1

REPORT INFORMATION
  Report Type: 
  Country: None (occurrence: None)
  Receive Date: 20070131
  Receipt Date: 20070131
  Transmission Date: 20070707
  Serious: Yes (Life-Threatening, Other)
  Sender: FDA-Public Use
  Company Number: None

PATIENT
  Age: 37 Year
  Sex: Male

DRUGS (1)
  1. LISINOPRIL [Suspect]
     Dosage: 10MG  QD  PO
     Route: 048
     Dates: start: 20060927, end: 20061108

REACTIONS (6)
  - BLOOD CREATININE INCREASED [None]
  - BLOOD UREA INCREASED [None]
  - DIZZINESS [None]
  - FATIGUE [None]
  - HYPOTENSION [None]
  - SEDATION [None]
